FAERS Safety Report 16297067 (Version 1)
Quarter: 2019Q2

REPORT INFORMATION
  Report Type: Spontaneous
  Country: US (occurrence: US)
  Receive Date: 20190509
  Receipt Date: 20190509
  Transmission Date: 20190711
  Serious: Yes (Death, Hospitalization)
  Sender: FDA-Public Use
  Company Number: None

PATIENT
  Age: 34 Year
  Weight: 67.5 kg

DRUGS (1)
  1. ENTYVIO [Suspect]
     Active Substance: VEDOLIZUMAB
     Indication: CROHN^S DISEASE
     Dosage: ?          QUANTITY:1 MONTHLY;OTHER FREQUENCY:MONTHLY;?
     Route: 042

REACTIONS (4)
  - Abdominal infection [None]
  - Cerebrovascular accident [None]
  - Central nervous system infection [None]
  - Cerebral haemorrhage [None]

NARRATIVE: CASE EVENT DATE: 20190315
